FAERS Safety Report 23999490 (Version 1)
Quarter: 2024Q2

REPORT INFORMATION
  Report Type: Spontaneous
  Country: US (occurrence: None)
  Receive Date: 20240620
  Receipt Date: 20240620
  Transmission Date: 20240715
  Serious: Yes (Hospitalization)
  Sender: FDA-Public Use
  Company Number: None

PATIENT
  Age: 28 Year
  Sex: Female

DRUGS (2)
  1. HUMIRA [Suspect]
     Active Substance: ADALIMUMAB
     Indication: Proctitis ulcerative
     Dosage: OTHER FREQUENCY : EVERY 2 WEEKS;?
     Route: 058
     Dates: start: 20220907
  2. HUMIRA CF PEN 40MG [Concomitant]
     Dates: start: 20220907

REACTIONS (3)
  - Sepsis [None]
  - Pharyngitis streptococcal [None]
  - Therapy interrupted [None]

NARRATIVE: CASE EVENT DATE: 20240511
